FAERS Safety Report 4521220-1 (Version None)
Quarter: 2004Q4

REPORT INFORMATION
  Report Type: 
  Country: None (occurrence: None)
  Receive Date: 20041208
  Receipt Date: 20041130
  Transmission Date: 20050328
  Serious: Yes (Life-Threatening, Hospitalization)
  Sender: FDA-Public Use
  Company Number: JP-MERCK-0412USA00293

PATIENT

DRUGS (2)
  1. PRIMAXIN [Suspect]
     Indication: INFECTION
     Route: 041
  2. MEROPENEM [Concomitant]
     Indication: INFECTION
     Route: 042

REACTIONS (3)
  - CONVULSION [None]
  - RENAL IMPAIRMENT [None]
  - SEPTIC SHOCK [None]
